FAERS Safety Report 8141185-3 (Version None)
Quarter: 2012Q1

REPORT INFORMATION
  Report Type: 
  Country: None (occurrence: None)
  Receive Date: 20120216
  Receipt Date: 20120206
  Transmission Date: 20120608
  Serious: Yes (Other)
  Sender: FDA-Public Use
  Company Number: US-SANOFI-AVENTIS-2012SA007978

PATIENT
  Age: 63 Year
  Sex: Male

DRUGS (1)
  1. AMBIEN [Suspect]

REACTIONS (6)
  - IMPAIRED DRIVING ABILITY [None]
  - PNEUMONIA [None]
  - ROAD TRAFFIC ACCIDENT [None]
  - PYREXIA [None]
  - MEMORY IMPAIRMENT [None]
  - BLOOD SODIUM INCREASED [None]
